FAERS Safety Report 5136515-0 (Version None)
Quarter: 2006Q4

REPORT INFORMATION
  Report Type: 
  Country: None (occurrence: None)
  Receive Date: 20061027
  Receipt Date: 20061018
  Transmission Date: 20070319
  Serious: Yes (Hospitalization, Other)
  Sender: FDA-Public Use
  Company Number: US-NOVOPROD-257837

PATIENT
  Age: 49 Year
  Sex: Female
  Weight: 80 kg

DRUGS (8)
  1. VIVELLE-DOT [Concomitant]
     Indication: NIGHT SWEATS
     Dates: start: 20060201
  2. VAGIFEM [Suspect]
     Indication: ATROPHIC VULVOVAGINITIS
     Dosage: 1 TAB, QD
     Route: 067
     Dates: start: 20061001, end: 20061014
  3. VAGIFEM [Suspect]
     Dosage: 1 TAB, QD
     Route: 067
     Dates: start: 20061016
  4. NOVOLOG [Concomitant]
     Indication: INSULIN-REQUIRING TYPE II DIABETES MELLITUS
     Dosage: 26 IU, QD + SLIDING SCALE
     Route: 058
  5. PREVACID [Concomitant]
     Indication: GASTROOESOPHAGEAL REFLUX DISEASE
     Route: 048
     Dates: start: 19960101
  6. VALTREX [Concomitant]
     Indication: HERPES VIRUS INFECTION
     Dosage: UNK, PRN
     Route: 048
  7. DIOVAN                             /01319601/ [Concomitant]
     Indication: HYPERTENSION
     Route: 048
     Dates: start: 20040101
  8. HYDROCHLOROTHIAZIDE [Concomitant]
     Indication: HYPERTENSION
     Route: 048
     Dates: start: 20040101, end: 20061009

REACTIONS (7)
  - BLOOD GLUCOSE INCREASED [None]
  - BLOOD PRESSURE INCREASED [None]
  - CLUSTER HEADACHE [None]
  - DIZZINESS [None]
  - HYPERTENSION [None]
  - HYPOTENSION [None]
  - NAUSEA [None]
